FAERS Safety Report 17471046 (Version 2)
Quarter: 2020Q1

REPORT INFORMATION
  Report Type: Spontaneous
  Country: US (occurrence: US)
  Receive Date: 20200228
  Receipt Date: 20200318
  Transmission Date: 20200409
  Serious: Yes (Death, Hospitalization, Other)
  Sender: FDA-Public Use
  Company Number: US-PFIZER INC-2020058508

PATIENT
  Age: 55 Year
  Sex: Female

DRUGS (32)
  1. NIVOLUMAB [Concomitant]
     Active Substance: NIVOLUMAB
     Dosage: UNK
     Dates: start: 20181024
  2. CANNABIDIOL [Concomitant]
     Active Substance: CANNABIDIOL
     Dosage: AS NEEDED (100 MG/ML, AS NEEDED (TAKE 1 ORAL FOUR TIMES A DAY PRN)
     Route: 048
  3. FLUZONE [FLUCONAZOLE] [Concomitant]
     Active Substance: FLUCONAZOLE
     Dosage: UNK
     Route: 030
     Dates: start: 201909
  4. LIDOCAINE. [Concomitant]
     Active Substance: LIDOCAINE
     Dosage: 10 ML, AS NEEDED, (10 ML MOUTH/THROAT EVERY 4 HOURS PRN)
     Route: 048
  5. XANAX [Concomitant]
     Active Substance: ALPRAZOLAM
     Dosage: 0.5 MG, AS NEEDED (1 TABLET ORAL EVERY 8 HOURS)
     Route: 048
     Dates: start: 20181003, end: 20191125
  6. AMOXICILLIN/CLAV POT [Concomitant]
     Dosage: 1 DF, 2X/DAY (875/125 MG)
     Route: 048
     Dates: end: 20191125
  7. DIPHENHYDRAMINE HCL [Concomitant]
     Active Substance: DIPHENHYDRAMINE HYDROCHLORIDE
     Dosage: UNK
     Dates: start: 20181016
  8. PAXIL CR [Concomitant]
     Active Substance: PAROXETINE HYDROCHLORIDE
     Dosage: 30 MG, DAILY
     Route: 048
  9. ZOFRAN [Concomitant]
     Active Substance: ONDANSETRON HYDROCHLORIDE
     Dosage: UNK
     Dates: start: 20181029
  10. TRAMADOL HCL [Concomitant]
     Active Substance: TRAMADOL HYDROCHLORIDE
     Dosage: 50 MG, 4X/DAY (TAKE 1 TABLET ORAL EVERY 6 HOURS FOR 30 DAYS)
     Route: 048
     Dates: start: 20191203, end: 20200102
  11. AMLODIPINE BESYLATE. [Concomitant]
     Active Substance: AMLODIPINE BESYLATE
     Dosage: 10 MG, DAILY (TAKE 1 TABLET ORAL DAILY)
     Route: 048
  12. DILAUDID [Concomitant]
     Active Substance: HYDROMORPHONE HYDROCHLORIDE
     Dosage: UNK UNK, AS NEEDED
     Route: 048
     Dates: start: 202001
  13. METOPROLOL TARTRATE. [Concomitant]
     Active Substance: METOPROLOL TARTRATE
     Dosage: 50 MG, 2X/DAY
     Route: 048
  14. INLYTA [Suspect]
     Active Substance: AXITINIB
     Indication: METASTATIC RENAL CELL CARCINOMA
     Dosage: UNK
     Dates: start: 20191028
  15. NIVOLUMAB [Concomitant]
     Active Substance: NIVOLUMAB
     Dosage: UNK
     Dates: end: 20190912
  16. ACETAMINOPHEN. [Concomitant]
     Active Substance: ACETAMINOPHEN
     Dosage: UNK
     Dates: end: 20191203
  17. PAXIL CR [Concomitant]
     Active Substance: PAROXETINE HYDROCHLORIDE
     Dosage: UNK
     Dates: start: 20190107
  18. CHOLECALCIFEROL [Concomitant]
     Active Substance: CHOLECALCIFEROL
     Dosage: 2000 IU, DAILY (TAKE 1 CAPSULE ORAL DAIL)
     Route: 048
  19. FENTANYL. [Concomitant]
     Active Substance: FENTANYL
     Dosage: UNK (37.5 MCG/HR- APPLY 1 TRANSDERMAL EVERY 3 DAYS)
     Route: 062
     Dates: start: 202001
  20. SODIUM CHLORIDE 0.9% [Concomitant]
     Active Substance: SODIUM CHLORIDE
     Dosage: UNK
     Dates: start: 20200129
  21. ACETAMINOPHEN. [Concomitant]
     Active Substance: ACETAMINOPHEN
     Dosage: UNK
     Dates: start: 20181016
  22. DIPHENHYDRAMINE HCL [Concomitant]
     Active Substance: DIPHENHYDRAMINE HYDROCHLORIDE
     Dosage: UNK
     Dates: end: 20191203
  23. HEPARIN LOCK FLUSH [Concomitant]
     Active Substance: HEPARIN SODIUM
     Dosage: UNK
     Dates: start: 20181024
  24. IRON DEXTRAN [Concomitant]
     Active Substance: IRON DEXTRAN
     Dosage: UNK
     Dates: end: 20191203
  25. INLYTA [Suspect]
     Active Substance: AXITINIB
     Dosage: 5 MG, 2X/DAY
     Route: 048
     Dates: start: 20191107, end: 20191121
  26. EMLA [LIDOCAINE;PRILOCAINE HYDROCHLORIDE] [Concomitant]
     Dosage: UNK
     Dates: start: 20190423
  27. IRON DEXTRAN [Concomitant]
     Active Substance: IRON DEXTRAN
     Dosage: UNK
     Dates: start: 20181016
  28. HEPARIN LOCK FLUSH [Concomitant]
     Active Substance: HEPARIN SODIUM
     Dosage: UNK
     Dates: end: 20200122
  29. BROMPHENIRAMINE- PSEUDOEPHEDRINE PD [Concomitant]
     Dosage: 10 ML, 4X/DAY (10 ML ORAL EVERY 6 HOURS)
     Route: 048
  30. FLUZONE [FLUCONAZOLE] [Concomitant]
     Active Substance: FLUCONAZOLE
     Dosage: UNK
     Dates: start: 201910
  31. PRENATAL [FOLIC ACID;IRON] [Concomitant]
     Dosage: 1 DF, DAILY
     Route: 048
  32. ZYRTEC [Concomitant]
     Active Substance: CETIRIZINE HYDROCHLORIDE
     Dosage: 1 DF, DAILY
     Route: 048

REACTIONS (5)
  - Death [Fatal]
  - Neoplasm progression [Unknown]
  - Blood loss anaemia [Not Recovered/Not Resolved]
  - Deep vein thrombosis [Not Recovered/Not Resolved]
  - Haematuria [Unknown]

NARRATIVE: CASE EVENT DATE: 20200129
